FAERS Safety Report 24935898 (Version 1)
Quarter: 2025Q1

REPORT INFORMATION
  Report Type: Report from Study
  Country: US (occurrence: US)
  Receive Date: 20250206
  Receipt Date: 20250206
  Transmission Date: 20250409
  Serious: Yes (Other)
  Sender: EXELIXIS
  Company Number: US-EXELIXIS-EXL-2024-000474

PATIENT
  Age: 69 Year
  Sex: Male

DRUGS (17)
  1. CABOMETYX [Suspect]
     Active Substance: CABOZANTINIB S-MALATE
     Indication: Thyroid cancer
     Dosage: 60 MG, QD
     Dates: start: 20240901
  2. ATORVASTATIN [Concomitant]
     Active Substance: ATORVASTATIN
  3. LEVOTHYROXINE [Concomitant]
     Active Substance: LEVOTHYROXINE
  4. VERAPAMIL [Concomitant]
     Active Substance: VERAPAMIL HYDROCHLORIDE
  5. MAGNESIUM [Concomitant]
     Active Substance: MAGNESIUM
  6. VITAMINS [Concomitant]
     Active Substance: VITAMINS
  7. B12 [Concomitant]
  8. ASPIRIN [Concomitant]
     Active Substance: ASPIRIN
  9. Dulcolax [Concomitant]
  10. HYDROMORPHONE [Concomitant]
     Active Substance: HYDROMORPHONE
  11. DEXAMETHASONE [Concomitant]
     Active Substance: DEXAMETHASONE
  12. TYLENOL [Concomitant]
     Active Substance: ACETAMINOPHEN
  13. PROCHLORPERAZINE [Concomitant]
     Active Substance: PROCHLORPERAZINE
  14. LOPERAMIDE [Concomitant]
     Active Substance: LOPERAMIDE
  15. DOCUSATE SODIUM [Concomitant]
     Active Substance: DOCUSATE SODIUM
  16. MORPHINE [Concomitant]
     Active Substance: MORPHINE
  17. DULOXETINE [Concomitant]
     Active Substance: DULOXETINE

REACTIONS (11)
  - Haematochezia [Not Recovered/Not Resolved]
  - Nephrolithiasis [Not Recovered/Not Resolved]
  - Fatigue [Not Recovered/Not Resolved]
  - Constipation [Recovered/Resolved]
  - Taste disorder [Not Recovered/Not Resolved]
  - Diarrhoea [Not Recovered/Not Resolved]
  - Dizziness [Recovered/Resolved]
  - Abdominal pain upper [Not Recovered/Not Resolved]
  - Prostatomegaly [Not Recovered/Not Resolved]
  - Dyspnoea [Recovered/Resolved]
  - Skin ulcer [Not Recovered/Not Resolved]

NARRATIVE: CASE EVENT DATE: 20240901
